FAERS Safety Report 7688576-2 (Version None)
Quarter: 2011Q3

REPORT INFORMATION
  Report Type: 
  Country: None (occurrence: None)
  Receive Date: 20110817
  Receipt Date: 20110810
  Transmission Date: 20111222
  Serious: Yes (Hospitalization, Other)
  Sender: FDA-Public Use
  Company Number: CA-ALLERGAN-1110869US

PATIENT
  Age: 42 Year
  Sex: Female
  Weight: 47.619 kg

DRUGS (4)
  1. SERC [Concomitant]
  2. ZOPICLONE [Concomitant]
  3. BOTULINUM TOXIN TYPE A [Suspect]
     Indication: PRODUCT USED FOR UNKNOWN INDICATION
     Dosage: UNK
  4. CESAMET [Concomitant]

REACTIONS (8)
  - MUSCULAR WEAKNESS [None]
  - MUSCLE SPASMS [None]
  - EYELID PTOSIS [None]
  - DYSPHAGIA [None]
  - INTERVERTEBRAL DISC PROTRUSION [None]
  - DIARRHOEA [None]
  - HEADACHE [None]
  - PAIN [None]
